FAERS Safety Report 23273288 (Version 1)
Quarter: 2023Q4

REPORT INFORMATION
  Report Type: Spontaneous
  Country: US (occurrence: None)
  Receive Date: 20231207
  Receipt Date: 20231207
  Transmission Date: 20240110
  Serious: Yes (Death)
  Sender: FDA-Public Use
  Company Number: None

PATIENT
  Age: 80 Year
  Sex: Male

DRUGS (2)
  1. TACROLIMUS [Suspect]
     Active Substance: TACROLIMUS
     Indication: Liver transplant
     Dosage: 0.5MG TWICWE DAILY ORAL?
     Route: 048
     Dates: start: 201705
  2. MYCOPHENOLIC ACID [Suspect]
     Active Substance: MYCOPHENOLIC ACID
     Indication: Liver transplant
     Dosage: 360MG TWICE DAILY ORAL?
     Route: 048
     Dates: start: 201504

REACTIONS (3)
  - Cardiac failure [None]
  - Renal failure [None]
  - Pneumonia [None]

NARRATIVE: CASE EVENT DATE: 20231125
